FAERS Safety Report 6532183-1 (Version None)
Quarter: 2010Q1

REPORT INFORMATION
  Report Type: 
  Country: None (occurrence: None)
  Receive Date: 20100107
  Receipt Date: 20100107
  Transmission Date: 20100710
  Serious: Yes (Other)
  Sender: FDA-Public Use
  Company Number: None

PATIENT
  Age: 54 Year
  Sex: Female
  Weight: 70.3075 kg

DRUGS (1)
  1. ZICAM [Suspect]
     Indication: NASOPHARYNGITIS
     Dosage: INDIVIDUAL SWAB TWICE NASAL
     Route: 045
     Dates: start: 20070301, end: 20070307

REACTIONS (2)
  - ANOSMIA [None]
  - HYPOSMIA [None]
